FAERS Safety Report 5621132-6 (Version None)
Quarter: 2008Q1

REPORT INFORMATION
  Report Type: 
  Country: None (occurrence: None)
  Receive Date: 20080114
  Receipt Date: 20070207
  Transmission Date: 20080703
  Serious: Yes (Hospitalization)
  Sender: FDA-Public Use
  Company Number: A03200701200

PATIENT
  Age: 79 Year
  Sex: Female
  Weight: 52.1637 kg

DRUGS (7)
  1. PLAVIX [Suspect]
     Indication: CEREBROVASCULAR ACCIDENT PROPHYLAXIS
     Dosage: 75 MG QD - ORAL
     Route: 048
     Dates: start: 20050101
  2. ASPIRIN [Suspect]
     Indication: CEREBROVASCULAR ACCIDENT PROPHYLAXIS
     Dosage: ORAL
     Route: 048
     Dates: start: 20050101, end: 20060101
  3. MEMANTINE HCL [Concomitant]
  4. REPAGLINIDE [Concomitant]
  5. LISINOPRIL [Concomitant]
  6. LANSOPRAZOLE [Concomitant]
  7. LEVOTHYROXINE SODIUM [Concomitant]

REACTIONS (2)
  - CONTUSION [None]
  - GASTRIC ULCER HAEMORRHAGE [None]
